FAERS Safety Report 19234457 (Version 4)
Quarter: 2021Q2

REPORT INFORMATION
  Report Type: Spontaneous
  Country: US (occurrence: US)
  Receive Date: 20210508
  Receipt Date: 20210619
  Transmission Date: 20210717
  Serious: No
  Sender: FDA-Public Use
  Company Number: US-TAKEDA-2021TUS029323

PATIENT
  Sex: Female
  Weight: 134 kg

DRUGS (8)
  1. GATTEX [Suspect]
     Active Substance: TEDUGLUTIDE\WATER
     Indication: SHORT-BOWEL SYNDROME
     Dosage: 5 MILLIGRAM
     Route: 065
  2. GATTEX [Suspect]
     Active Substance: TEDUGLUTIDE\WATER
     Indication: ENTEROCUTANEOUS FISTULA
     Dosage: 3 MILLIGRAM (0.3 MILLILITER), QD
     Route: 058
     Dates: start: 20210425
  3. GATTEX [Suspect]
     Active Substance: TEDUGLUTIDE\WATER
     Indication: ENTEROCUTANEOUS FISTULA
     Dosage: 3 MILLIGRAM (0.3 MILLILITER), QD
     Route: 058
     Dates: start: 20210425
  4. GATTEX [Suspect]
     Active Substance: TEDUGLUTIDE\WATER
     Indication: ENTEROCUTANEOUS FISTULA
     Dosage: 3 MILLIGRAM (0.3 MILLILITER), QD
     Route: 058
     Dates: start: 20210425
  5. GATTEX [Suspect]
     Active Substance: TEDUGLUTIDE\WATER
     Indication: SHORT-BOWEL SYNDROME
     Dosage: 5 MILLIGRAM
     Route: 065
  6. GATTEX [Suspect]
     Active Substance: TEDUGLUTIDE\WATER
     Indication: SHORT-BOWEL SYNDROME
     Dosage: 5 MILLIGRAM
     Route: 065
  7. GATTEX [Suspect]
     Active Substance: TEDUGLUTIDE\WATER
     Indication: SHORT-BOWEL SYNDROME
     Dosage: 5 MILLIGRAM
     Route: 065
  8. GATTEX [Suspect]
     Active Substance: TEDUGLUTIDE\WATER
     Indication: ENTEROCUTANEOUS FISTULA
     Dosage: 3 MILLIGRAM (0.3 MILLILITER), QD
     Route: 058
     Dates: start: 20210425

REACTIONS (4)
  - Nausea [Unknown]
  - Muscle spasms [Unknown]
  - Stoma complication [Recovering/Resolving]
  - Fistula discharge [Unknown]
